FAERS Safety Report 17152239 (Version 1)
Quarter: 2019Q4

REPORT INFORMATION
  Report Type: Spontaneous
  Country: US (occurrence: US)
  Receive Date: 20191213
  Receipt Date: 20191213
  Transmission Date: 20200122
  Serious: No
  Sender: FDA-Public Use
  Company Number: US-AMAG PHARMACEUTICALS, INC.-AMAG201906351

PATIENT
  Age: 60 Year
  Sex: Female
  Weight: 59.02 kg

DRUGS (6)
  1. VENLAFAXINE [Concomitant]
     Active Substance: VENLAFAXINE HYDROCHLORIDE
     Indication: DEPRESSION
     Dosage: STARTED IN 2009. THE PATIENTTAKES 150MG QDAY.
     Route: 048
     Dates: start: 2009
  2. LEVOTHYROXINE. [Concomitant]
     Active Substance: LEVOTHYROXINE
     Indication: HYPOTHYROIDISM
     Dosage: THE PATIENT STARTED TAKING THIS IN 1999. SHE TAKES 100MCG EVERY DAY.
     Route: 048
     Dates: start: 1999
  3. FENOFIBRATE. [Concomitant]
     Active Substance: FENOFIBRATE
     Indication: BLOOD TRIGLYCERIDES INCREASED
     Dosage: THE PATIENT STARTED TAKING THIS IN 2017. SHE TAKES 160MG EVERY DAY.
     Route: 048
     Dates: start: 2017
  4. FISH OIL [Concomitant]
     Active Substance: FISH OIL
     Indication: BLOOD TRIGLYCERIDES INCREASED
     Dosage: THE PATIENT TAKES 5ML EVERY DAY.
     Route: 048
  5. INTRAROSA [Suspect]
     Active Substance: PRASTERONE
     Indication: DYSPAREUNIA
     Dosage: THE PATIENT TAKES ONE 6.5MG VAGINAL INSERT EVERY NIGHT.
     Route: 067
     Dates: start: 20191020
  6. VITAMIN D [Concomitant]
     Active Substance: VITAMIN D NOS
     Indication: PRODUCT USED FOR UNKNOWN INDICATION
     Dosage: THE PATIENT TAKES 400 IU EVERY DAY.
     Route: 048

REACTIONS (2)
  - Underdose [Unknown]
  - Therapeutic response unexpected [Unknown]

NARRATIVE: CASE EVENT DATE: 2019
